FAERS Safety Report 21704685 (Version 2)
Quarter: 2023Q1

REPORT INFORMATION
  Report Type: Spontaneous
  Country: US (occurrence: US)
  Receive Date: 20221209
  Receipt Date: 20230126
  Transmission Date: 20230418
  Serious: Yes (Death)
  Sender: FDA-Public Use
  Company Number: US-Merz Pharmaceuticals GmbH-22-03726

PATIENT
  Age: 58 Year
  Sex: Female

DRUGS (3)
  1. XEOMIN [Suspect]
     Active Substance: INCOBOTULINUMTOXINA
     Indication: Salivary hypersecretion
     Route: 030
     Dates: start: 20221110, end: 20221110
  2. XEOMIN [Suspect]
     Active Substance: INCOBOTULINUMTOXINA
     Indication: Torticollis
     Route: 030
     Dates: start: 20221110, end: 20221110
  3. XEOMIN [Suspect]
     Active Substance: INCOBOTULINUMTOXINA
     Route: 030
     Dates: start: 20220415, end: 20220415

REACTIONS (1)
  - Death [Fatal]
